FAERS Safety Report 5699102-1 (Version None)
Quarter: 2008Q2

REPORT INFORMATION
  Report Type: 
  Country: None (occurrence: None)
  Receive Date: 20080407
  Receipt Date: 20080407
  Transmission Date: 20081010
  Serious: Yes (Life-Threatening, Other)
  Sender: FDA-Public Use
  Company Number: None

PATIENT
  Sex: Female

DRUGS (1)
  1. MEFLOQUINE HCL [Suspect]
     Dosage: 250 MG 1 A WEEK PO
     Route: 048
     Dates: start: 20060601, end: 20060612

REACTIONS (8)
  - ANXIETY [None]
  - BALANCE DISORDER [None]
  - DIZZINESS [None]
  - HALLUCINATION [None]
  - INSOMNIA [None]
  - NIGHTMARE [None]
  - PARANOIA [None]
  - SUICIDAL IDEATION [None]
